FAERS Safety Report 7919142-9 (Version None)
Quarter: 2011Q4

REPORT INFORMATION
  Report Type: 
  Country: None (occurrence: None)
  Receive Date: 20111117
  Receipt Date: 20111107
  Transmission Date: 20120403
  Serious: Yes (Hospitalization)
  Sender: FDA-Public Use
  Company Number: US-ROCHE-1012275

PATIENT

DRUGS (3)
  1. PACLITAXEL [Suspect]
     Indication: BREAST CANCER
     Route: 042
  2. HERCEPTIN [Suspect]
     Indication: BREAST CANCER
     Dosage: LOADING DOSE, CYCLE 1 ONLY
     Route: 042
     Dates: start: 20010510
  3. HERCEPTIN [Suspect]
     Dosage: LOADING DOSE, CYCLE 1 ONLY
     Route: 042
     Dates: start: 20010510

REACTIONS (3)
  - EMBOLISM [None]
  - LEFT VENTRICULAR DYSFUNCTION [None]
  - DEEP VEIN THROMBOSIS [None]
